FAERS Safety Report 10750815 (Version 1)
Quarter: 2015Q1

REPORT INFORMATION
  Report Type: Spontaneous
  Country: US (occurrence: None)
  Receive Date: 20150128
  Receipt Date: 20150128
  Transmission Date: 20150721
  Serious: Yes (Hospitalization, Other)
  Sender: FDA-Public Use
  Company Number: DEP_02469_2015

PATIENT
  Age: 35 Year
  Sex: Male
  Weight: 108.86 kg

DRUGS (3)
  1. GRALISE [Suspect]
     Active Substance: GABAPENTIN
     Indication: NERVE INJURY
     Dosage: TITRATED UP TO 1800 MG
     Route: 048
     Dates: start: 201305, end: 2013
  2. GRALISE [Suspect]
     Active Substance: GABAPENTIN
     Indication: MIGRAINE
     Dosage: TITRATED UP TO 1800 MG
     Route: 048
     Dates: start: 201305, end: 2013
  3. GRALISE [Suspect]
     Active Substance: GABAPENTIN
     Indication: OFF LABEL USE
     Dosage: TITRATED UP TO 1800 MG
     Route: 048
     Dates: start: 201305, end: 2013

REACTIONS (3)
  - Meningitis bacterial [None]
  - Nosocomial infection [None]
  - Staphylococcal infection [None]

NARRATIVE: CASE EVENT DATE: 201406
